FAERS Safety Report 7859813-6 (Version None)
Quarter: 2011Q4

REPORT INFORMATION
  Report Type: 
  Country: None (occurrence: None)
  Receive Date: 20111027
  Receipt Date: 20111021
  Transmission Date: 20120403
  Serious: Yes (Other)
  Sender: FDA-Public Use
  Company Number: JP-PFIZER INC-2011256024

PATIENT
  Age: 72 Year
  Sex: Female

DRUGS (4)
  1. MUCOSTA [Concomitant]
     Dosage: 300 MG DAILY
     Route: 048
     Dates: start: 20101001
  2. LYRICA [Suspect]
     Indication: PAIN
     Dosage: 100 MG DAILY
     Route: 048
     Dates: start: 20110920, end: 20111011
  3. SAIREI-TO [Suspect]
     Dosage: 9 G DAILY
     Route: 048
     Dates: start: 20101001, end: 20111011
  4. LOXONIN [Concomitant]
     Dosage: 180 MG DAILY
     Route: 048
     Dates: start: 20101001

REACTIONS (2)
  - GAMMA-GLUTAMYLTRANSFERASE INCREASED [None]
  - LIVER DISORDER [None]
